FAERS Safety Report 22899600 (Version 2)
Quarter: 2023Q4

REPORT INFORMATION
  Report Type: Report from Study
  Country: CO (occurrence: CO)
  Receive Date: 20230904
  Receipt Date: 20231010
  Transmission Date: 20240110
  Serious: Yes (Hospitalization)
  Sender: FDA-Public Use
  Company Number: CO-Merck Healthcare KGaA-2023470793

PATIENT
  Age: 16 Year
  Sex: Female

DRUGS (1)
  1. SAIZEN [Suspect]
     Active Substance: SOMATROPIN
     Indication: Growth hormone deficiency
     Route: 058
     Dates: start: 20150221

REACTIONS (1)
  - Brain neoplasm [Recovering/Resolving]

NARRATIVE: CASE EVENT DATE: 20230818
